FAERS Safety Report 9013691 (Version 1)
Quarter: 2013Q1

REPORT INFORMATION
  Report Type: Spontaneous
  Country: US (occurrence: None)
  Receive Date: 20130107
  Receipt Date: 20130107
  Transmission Date: 20140127
  Serious: No
  Sender: FDA-Public Use
  Company Number: None

PATIENT
  Age: 5 Year
  Sex: Male
  Weight: 30 kg

DRUGS (2)
  1. BENEFIX [Suspect]
     Indication: FACTOR IX DEFICIENCY
     Dosage: 2040 2XW IV BOLUS
     Route: 040
     Dates: start: 20100116, end: 20110115
  2. BENEFIX [Suspect]
     Indication: HAEMARTHROSIS
     Dosage: 2040 2XW IV BOLUS
     Route: 040
     Dates: start: 20100116, end: 20110115

REACTIONS (1)
  - Product contamination [None]
